FAERS Safety Report 5643280-7 (Version None)
Quarter: 2008Q1

REPORT INFORMATION
  Report Type: 
  Country: None (occurrence: None)
  Receive Date: 20080131
  Receipt Date: 20071016
  Transmission Date: 20080703
  Serious: No
  Sender: FDA-Public Use
  Company Number: PHEH2007US13070

PATIENT
  Sex: Female

DRUGS (1)
  1. TEKTURNA [Suspect]
     Indication: HYPERTENSION
     Dosage: 150 MG, QD, ORAL
     Route: 048
     Dates: start: 20070928

REACTIONS (4)
  - GAIT DISTURBANCE [None]
  - HEADACHE [None]
  - MENTAL IMPAIRMENT [None]
  - STOMACH DISCOMFORT [None]
